FAERS Safety Report 12897575 (Version 1)
Quarter: 2016Q4

REPORT INFORMATION
  Report Type: Spontaneous
  Country: US (occurrence: US)
  Receive Date: 20161031
  Receipt Date: 20161031
  Transmission Date: 20170207
  Serious: Yes (Other)
  Sender: FDA-Public Use
  Company Number: US-DEPOMED, INC.-US-2016DEP012570

PATIENT
  Age: 64 Year
  Sex: Male

DRUGS (1)
  1. GABAPENTIN. [Suspect]
     Active Substance: GABAPENTIN
     Indication: PALMAR-PLANTAR ERYTHRODYSAESTHESIA SYNDROME
     Dosage: 300 MG, TITRATED UP TO TID

REACTIONS (2)
  - Ataxia [Unknown]
  - Dysphoria [Unknown]
